FAERS Safety Report 5277435-0 (Version None)
Quarter: 2007Q1

REPORT INFORMATION
  Report Type: 
  Country: None (occurrence: None)
  Receive Date: 20061213
  Receipt Date: 20040615
  Transmission Date: 20070707
  Serious: No
  Sender: FDA-Public Use
  Company Number: 2004UW12499

PATIENT

DRUGS (2)
  1. SEROQUEL [Suspect]
     Dosage: 300 MG
  2. RISPERDAL [Concomitant]

REACTIONS (1)
  - DYSKINESIA [None]
